FAERS Safety Report 6983871-4 (Version None)
Quarter: 2010Q3

REPORT INFORMATION
  Report Type: 
  Country: None (occurrence: None)
  Receive Date: 20100914
  Receipt Date: 20090324
  Transmission Date: 20110219
  Serious: No
  Sender: FDA-Public Use
  Company Number: US-WYE-H08717309

PATIENT
  Age: 51 Year
  Sex: Male

DRUGS (3)
  1. ADVIL LIQUI-GELS [Suspect]
     Indication: ANALGESIC THERAPY
     Dosage: 1 TAB AS NEEDED
     Route: 048
  2. ASCORBIC ACID/ERGOCALCIFEROL/FOLIC ACID/NICOTINAMIDE/PANTHENOL/RETINOL [Concomitant]
  3. FISH OIL, HYDROGENATED [Concomitant]

REACTIONS (1)
  - GLOSSITIS [None]
